FAERS Safety Report 17585922 (Version 1)
Quarter: 2020Q1

REPORT INFORMATION
  Report Type: Spontaneous
  Country: US (occurrence: US)
  Receive Date: 20200326
  Receipt Date: 20200326
  Transmission Date: 20200409
  Serious: Yes (Death)
  Sender: FDA-Public Use
  Company Number: None

PATIENT
  Age: 58 Year
  Sex: Female
  Weight: 80.1 kg

DRUGS (4)
  1. TRASTUZUMAB. [Concomitant]
     Active Substance: TRASTUZUMAB
     Dates: start: 20190502, end: 20190502
  2. CARBOPLATIN. [Concomitant]
     Active Substance: CARBOPLATIN
     Dates: start: 20190502, end: 20190502
  3. PERTUZUMAB. [Concomitant]
     Active Substance: PERTUZUMAB
     Dates: start: 20190502, end: 20190502
  4. DOCETAXEL. [Suspect]
     Active Substance: DOCETAXEL
     Indication: BREAST CANCER STAGE III
     Dosage: ?          OTHER FREQUENCY:ONCE;?
     Route: 041
     Dates: start: 20190509, end: 20190509

REACTIONS (8)
  - Sepsis [None]
  - Dialysis [None]
  - Respiratory failure [None]
  - Embolism [None]
  - Abdominal pain [None]
  - Thrombosis [None]
  - Gastrointestinal necrosis [None]
  - Renal failure [None]

NARRATIVE: CASE EVENT DATE: 20190511
